FAERS Safety Report 6726979-0 (Version None)
Quarter: 2010Q2

REPORT INFORMATION
  Report Type: 
  Country: None (occurrence: None)
  Receive Date: 20100517
  Receipt Date: 20100511
  Transmission Date: 20101027
  Serious: No
  Sender: FDA-Public Use
  Company Number: US-BIOGENIDEC-2010BI015579

PATIENT
  Sex: Female

DRUGS (4)
  1. AVONEX [Suspect]
     Indication: MULTIPLE SCLEROSIS
     Route: 030
     Dates: start: 20090801, end: 20091212
  2. AVONEX [Suspect]
     Route: 030
     Dates: start: 20000301, end: 20030801
  3. AVONEX [Suspect]
     Route: 030
     Dates: start: 20030901, end: 20030901
  4. AVONEX [Suspect]
     Route: 030
     Dates: start: 20031001, end: 20090701

REACTIONS (14)
  - EMOTIONAL DISORDER [None]
  - EMOTIONAL DISTRESS [None]
  - HYPOAESTHESIA [None]
  - INJECTION SITE HAEMORRHAGE [None]
  - INJECTION SITE INDURATION [None]
  - INJECTION SITE PAIN [None]
  - MOTOR DYSFUNCTION [None]
  - MUSCLE SPASMS [None]
  - MYALGIA [None]
  - PAIN IN EXTREMITY [None]
  - PARAESTHESIA [None]
  - PHLEBITIS [None]
  - SENSORY DISTURBANCE [None]
  - VARICOSE VEIN [None]
